FAERS Safety Report 6371906-1 (Version None)
Quarter: 2009Q3

REPORT INFORMATION
  Report Type: 
  Country: None (occurrence: None)
  Receive Date: 20090918
  Receipt Date: 20090918
  Transmission Date: 20100115
  Serious: Yes (Other)
  Sender: FDA-Public Use
  Company Number: None

PATIENT
  Age: 36 Year
  Sex: Female
  Weight: 61.2356 kg

DRUGS (2)
  1. LEVAQUIN [Suspect]
     Indication: ANIMAL BITE
     Dosage: 750 MG SID PO
     Route: 048
     Dates: start: 20090829, end: 20090905
  2. LEVAQUIN [Suspect]
     Indication: CELLULITIS
     Dosage: 750 MG SID PO
     Route: 048
     Dates: start: 20090829, end: 20090905

REACTIONS (5)
  - ARTHRALGIA [None]
  - ASTHENIA [None]
  - DYSSTASIA [None]
  - FALL [None]
  - INJURY [None]
